FAERS Safety Report 7534529-4 (Version None)
Quarter: 2011Q2

REPORT INFORMATION
  Report Type: 
  Country: None (occurrence: None)
  Receive Date: 20110609
  Receipt Date: 20091016
  Transmission Date: 20111010
  Serious: Yes (Other)
  Sender: FDA-Public Use
  Company Number: PHEH2006US12995

PATIENT

DRUGS (1)
  1. ZOMETA [Suspect]
     Dosage: UNKNOWN

REACTIONS (1)
  - OSTEONECROSIS OF JAW [None]
